FAERS Safety Report 18188818 (Version 1)
Quarter: 2020Q3

REPORT INFORMATION
  Report Type: Other
  Country: GB (occurrence: GB)
  Receive Date: 20200825
  Receipt Date: 20200825
  Transmission Date: 20201103
  Serious: Yes (Death)
  Sender: FDA-Public Use
  Company Number: GB-ROCHE-2238514

PATIENT
  Sex: Female

DRUGS (1)
  1. ESBRIET [Suspect]
     Active Substance: PIRFENIDONE
     Indication: IDIOPATHIC PULMONARY FIBROSIS
     Dosage: TITRATION AND MAINTENACE DOSE?1 TABLET TO BE TAKEN 3 TIMES A DAY
     Route: 048
     Dates: start: 201812, end: 201812

REACTIONS (2)
  - Death [Fatal]
  - Diarrhoea [Unknown]
